FAERS Safety Report 11256584 (Version 1)
Quarter: 2015Q3

REPORT INFORMATION
  Report Type: Spontaneous
  Country: US (occurrence: US)
  Receive Date: 20150709
  Receipt Date: 20150709
  Transmission Date: 20151125
  Serious: No
  Sender: FDA-Public Use
  Company Number: US-PURDUE-USA-2014-0118774

PATIENT
  Sex: Male

DRUGS (2)
  1. BUTRANS [Suspect]
     Active Substance: BUPRENORPHINE
     Indication: BACK PAIN
     Dosage: 20 MCG/HR, WEEKLY
     Route: 062
     Dates: start: 2013
  2. BUTRANS [Suspect]
     Active Substance: BUPRENORPHINE
     Indication: BREAKTHROUGH PAIN
     Dosage: 10 MCG/HR, WEEKLY
     Route: 062
     Dates: start: 2012

REACTIONS (6)
  - Application site erythema [Unknown]
  - Application site pruritus [Unknown]
  - Application site infection [Unknown]
  - Drug ineffective [Unknown]
  - Application site exfoliation [Unknown]
  - Application site discharge [Unknown]
